FAERS Safety Report 8603229-1 (Version None)
Quarter: 2012Q3

REPORT INFORMATION
  Report Type: 
  Country: None (occurrence: None)
  Receive Date: 20120817
  Receipt Date: 20120813
  Transmission Date: 20120928
  Serious: Yes (Congenital Anomaly, Other)
  Sender: FDA-Public Use
  Company Number: US-TEVA-2011003259

PATIENT
  Sex: Female

DRUGS (6)
  1. NUVIGIL [Suspect]
     Indication: NARCOLEPSY
     Route: 065
  2. METHYLPHENIDATE HYDROCHLORIDE [Concomitant]
     Indication: NARCOLEPSY
     Dosage: LAST DOSE AT 25 WEEKS GESTATION
     Dates: start: 20110101
  3. FLUOXETINE HYDROCHLORIDE [Concomitant]
     Indication: DEPRESSION
     Dosage: 20 MILLIGRAM DAILY;
     Dates: start: 20110615
  4. PRISTIQ [Concomitant]
     Indication: DEPRESSION
     Dates: start: 20100101, end: 20110605
  5. PRISTIQ [Concomitant]
     Indication: NARCOLEPSY
  6. OBETROL [Concomitant]
     Dosage: 1ST DOSE AT 25 WEEKS GESTATION

REACTIONS (4)
  - FOETAL DISTRESS SYNDROME [None]
  - LIVE BIRTH [None]
  - GASTROOESOPHAGEAL REFLUX DISEASE [None]
  - STRABISMUS [None]
